FAERS Safety Report 18484593 (Version 2)
Quarter: 2021Q1

REPORT INFORMATION
  Report Type: Report from Study
  Country: US (occurrence: US)
  Receive Date: 20201110
  Receipt Date: 20210113
  Transmission Date: 20210419
  Serious: Yes (Other)
  Sender: FDA-Public Use
  Company Number: US-ALNYLAM PHARMACEUTICALS, INC.-ALN-2020-002036

PATIENT

DRUGS (1)
  1. GIVLAARI [Suspect]
     Active Substance: GIVOSIRAN SODIUM
     Indication: PORPHYRIA ACUTE
     Dosage: 174.64 MILLIGRAM, MONTHLY
     Route: 058
     Dates: start: 20201014

REACTIONS (5)
  - Fatigue [Unknown]
  - Hypoaesthesia [Unknown]
  - Epistaxis [Unknown]
  - Neuralgia [Unknown]
  - Loss of consciousness [Recovered/Resolved]

NARRATIVE: CASE EVENT DATE: 20201014
